FAERS Safety Report 7294308-2 (Version None)
Quarter: 2011Q1

REPORT INFORMATION
  Report Type: 
  Country: None (occurrence: None)
  Receive Date: 20110215
  Receipt Date: 20110211
  Transmission Date: 20110831
  Serious: Yes (Hospitalization)
  Sender: FDA-Public Use
  Company Number: US-MERCK-1101USA01112

PATIENT
  Age: 58 Year
  Sex: Female

DRUGS (7)
  1. OMEPRAZOLE [Concomitant]
     Route: 065
  2. LEXAPRO [Concomitant]
     Route: 065
  3. AMITIZA [Concomitant]
     Route: 065
  4. ALENDRONATE SODIUM [Suspect]
     Indication: OSTEOPOROSIS
     Route: 048
  5. FOSAMAX [Suspect]
     Indication: OSTEOPOROSIS
     Route: 048
     Dates: start: 19960101, end: 20101001
  6. CHANTIX [Concomitant]
     Route: 065
  7. EVISTA [Concomitant]
     Route: 065

REACTIONS (3)
  - LOWER LIMB FRACTURE [None]
  - FOOT FRACTURE [None]
  - PELVIC FRACTURE [None]
